FAERS Safety Report 14638247 (Version 1)
Quarter: 2018Q1

REPORT INFORMATION
  Report Type: Spontaneous
  Country: IN (occurrence: IN)
  Receive Date: 20180314
  Receipt Date: 20180314
  Transmission Date: 20180509
  Serious: No
  Sender: FDA-Public Use
  Company Number: None

PATIENT
  Age: 26 Year
  Sex: Male
  Weight: 65 kg

DRUGS (5)
  1. MEDROL [Suspect]
     Active Substance: METHYLPREDNISOLONE
     Indication: URTICARIA
     Route: 048
     Dates: start: 20180313
  2. LEVOCERTIZINE [Concomitant]
  3. SAFI [Concomitant]
  4. MEDROL [Suspect]
     Active Substance: METHYLPREDNISOLONE
     Indication: RASH PRURITIC
     Route: 048
     Dates: start: 20180313
  5. PARACETAMOL [Concomitant]
     Active Substance: ACETAMINOPHEN

REACTIONS (4)
  - Anxiety [None]
  - Angina pectoris [None]
  - Feeling abnormal [None]
  - Chest pain [None]

NARRATIVE: CASE EVENT DATE: 20180314
